FAERS Safety Report 6171038-1 (Version None)
Quarter: 2009Q2

REPORT INFORMATION
  Report Type: 
  Country: None (occurrence: None)
  Receive Date: 20090429
  Receipt Date: 20090420
  Transmission Date: 20091009
  Serious: Yes (Other)
  Sender: FDA-Public Use
  Company Number: US-JNJFOC-20090405547

PATIENT
  Sex: Male
  Weight: 81.65 kg

DRUGS (4)
  1. RISPERDAL [Suspect]
     Indication: BIPOLAR DISORDER
     Route: 048
  2. LORAZEPAM [Suspect]
     Indication: ANXIETY
     Dosage: AS NEEDED
     Route: 048
  3. UNSPECIFIED MEDICATION [Suspect]
     Indication: DRUG USE FOR UNKNOWN INDICATION
     Route: 048
  4. LAMICTAL [Concomitant]
     Indication: EPILEPSY
     Route: 048

REACTIONS (7)
  - CHROMATURIA [None]
  - DELIRIUM [None]
  - DYSURIA [None]
  - FEELING ABNORMAL [None]
  - HYPOAESTHESIA [None]
  - INSOMNIA [None]
  - TINNITUS [None]
